FAERS Safety Report 16299529 (Version 3)
Quarter: 2020Q4

REPORT INFORMATION
  Report Type: Spontaneous
  Country: US (occurrence: US)
  Receive Date: 20190510
  Receipt Date: 20201229
  Transmission Date: 20210113
  Serious: Yes (Hospitalization, Other)
  Sender: FDA-Public Use
  Company Number: US-ASTRAZENECA-2019SE62955

PATIENT
  Age: 15813 Day
  Sex: Male
  Weight: 100.2 kg

DRUGS (41)
  1. ASPIRIN. [Concomitant]
     Active Substance: ASPIRIN
     Indication: PAIN
     Dates: start: 2013, end: 2019
  2. VITAMIN C [Concomitant]
     Active Substance: ASCORBIC ACID
     Indication: HYPOVITAMINOSIS
     Dates: start: 2013, end: 2019
  3. NIFEDIPINE. [Concomitant]
     Active Substance: NIFEDIPINE
  4. LEVOTHYROXINE. [Concomitant]
     Active Substance: LEVOTHYROXINE
  5. CIPROFLOXACIN HYDROCHLORIDE. [Concomitant]
     Active Substance: CIPROFLOXACIN HYDROCHLORIDE
  6. AMOXICILLIN. [Concomitant]
     Active Substance: AMOXICILLIN
  7. BIDIL [Concomitant]
     Active Substance: HYDRALAZINE HYDROCHLORIDE\ISOSORBIDE DINITRATE
  8. NORVASC [Concomitant]
     Active Substance: AMLODIPINE BESYLATE
     Indication: HYPERTENSION
     Dates: start: 2013
  9. FUROSEMIDE. [Concomitant]
     Active Substance: FUROSEMIDE
     Indication: FLUID RETENTION
     Dates: start: 2013
  10. VITAMIN D [Concomitant]
     Active Substance: VITAMIN D NOS
     Indication: HYPOVITAMINOSIS
     Dates: start: 2013, end: 2019
  11. HYDRALAZINE [Concomitant]
     Active Substance: HYDRALAZINE HYDROCHLORIDE
  12. TRAMADOL HYDROCHLORIDE. [Concomitant]
     Active Substance: TRAMADOL HYDROCHLORIDE
  13. COREG [Concomitant]
     Active Substance: CARVEDILOL
     Indication: CARDIAC FAILURE
     Dates: start: 2013
  14. RANITIDINE. [Concomitant]
     Active Substance: RANITIDINE
     Dosage: GENERIC
     Dates: start: 2016, end: 2018
  15. HYDROXYZINE PAM [Concomitant]
     Active Substance: HYDROXYZINE PAMOATE
  16. HYDROCODONE-ACETAMINOPHEN [Concomitant]
     Active Substance: ACETAMINOPHEN\HYDROCODONE
  17. HYDRALAZINE HCL [Concomitant]
     Active Substance: HYDRALAZINE HYDROCHLORIDE
     Indication: HYPERTENSION
     Dates: start: 2013
  18. PRAVASTATIN. [Concomitant]
     Active Substance: PRAVASTATIN
  19. NITROGLYCERIN. [Concomitant]
     Active Substance: NITROGLYCERIN
  20. NEXIUM [Suspect]
     Active Substance: ESOMEPRAZOLE MAGNESIUM
     Indication: GASTROOESOPHAGEAL REFLUX DISEASE
     Route: 048
     Dates: start: 201301, end: 201612
  21. LITHIUM CARBONATE. [Concomitant]
     Active Substance: LITHIUM CARBONATE
  22. TORSEMIDE. [Concomitant]
     Active Substance: TORSEMIDE
     Indication: FLUID RETENTION
     Dates: start: 2013
  23. ABILIFY [Concomitant]
     Active Substance: ARIPIPRAZOLE
  24. LITHIUM. [Concomitant]
     Active Substance: LITHIUM
  25. BACLOFEN. [Concomitant]
     Active Substance: BACLOFEN
  26. NYSTATIN. [Concomitant]
     Active Substance: NYSTATIN
  27. RANITIDINE HYDROCHLORIDE. [Concomitant]
     Active Substance: RANITIDINE HYDROCHLORIDE
  28. NEXIUM [Suspect]
     Active Substance: ESOMEPRAZOLE MAGNESIUM
     Indication: GASTROOESOPHAGEAL REFLUX DISEASE
     Route: 048
     Dates: start: 201301, end: 201612
  29. SODIUM BICARBONATE. [Concomitant]
     Active Substance: SODIUM BICARBONATE
     Indication: DYSPEPSIA
     Dates: start: 2013
  30. PRAVASTATIN SODIUM. [Concomitant]
     Active Substance: PRAVASTATIN SODIUM
     Indication: BLOOD CHOLESTEROL ABNORMAL
     Dates: start: 2013
  31. COREG [Concomitant]
     Active Substance: CARVEDILOL
     Indication: MYOCARDIAL INFARCTION
     Dates: start: 2013
  32. LEVOTHYROXINE SODIUM. [Concomitant]
     Active Substance: LEVOTHYROXINE SODIUM
     Indication: HYPOTHYROIDISM
     Dates: start: 2013
  33. LISINOPRIL. [Concomitant]
     Active Substance: LISINOPRIL
  34. METFORMIN [Concomitant]
     Active Substance: METFORMIN HYDROCHLORIDE
  35. GLIMEPIRIDE. [Concomitant]
     Active Substance: GLIMEPIRIDE
  36. TRAMADOL. [Concomitant]
     Active Substance: TRAMADOL
  37. AMLODIPINE BESYLATE. [Concomitant]
     Active Substance: AMLODIPINE BESYLATE
  38. CALCIUM ACETATE. [Concomitant]
     Active Substance: CALCIUM ACETATE
  39. PREDNISONE. [Concomitant]
     Active Substance: PREDNISONE
  40. MORPHINE [Concomitant]
     Active Substance: MORPHINE
  41. PROAIR HFA [Concomitant]
     Active Substance: ALBUTEROL SULFATE

REACTIONS (4)
  - Chronic kidney disease [Not Recovered/Not Resolved]
  - Acute kidney injury [Unknown]
  - End stage renal disease [Unknown]
  - Nephrogenic anaemia [Unknown]

NARRATIVE: CASE EVENT DATE: 20130104
